FAERS Safety Report 8589033-1 (Version None)
Quarter: 2012Q3

REPORT INFORMATION
  Report Type: 
  Country: None (occurrence: None)
  Receive Date: 20120813
  Receipt Date: 20120802
  Transmission Date: 20120928
  Serious: Yes (Hospitalization)
  Sender: FDA-Public Use
  Company Number: JP-PFIZER INC-2012182131

PATIENT
  Age: 62 Year
  Sex: Male
  Weight: 75.4 kg

DRUGS (1)
  1. ADRIAMYCIN PFS [Suspect]
     Dosage: UNK
     Dates: start: 20101001

REACTIONS (1)
  - CELLULITIS [None]
